FAERS Safety Report 5311096-7 (Version None)
Quarter: 2007Q2

REPORT INFORMATION
  Report Type: 
  Country: None (occurrence: None)
  Receive Date: 20070430
  Receipt Date: 20070419
  Transmission Date: 20071010
  Serious: Yes (Hospitalization, Other)
  Sender: FDA-Public Use
  Company Number: US-NOVOPROD-261287

PATIENT
  Age: 12 Year
  Sex: Male
  Weight: 35.7 kg

DRUGS (3)
  1. NORDITROPIN NORDIFLEX [Suspect]
     Indication: GROWTH HORMONE DEFICIENCY
     Dosage: 3.6 MG, 6 TIMES A WEEK
     Route: 058
     Dates: start: 20030917
  2. NORDITROPIN NORDIFLEX [Suspect]
     Dosage: 2.85 MG, SIX TIMES A WEEK
     Route: 058
     Dates: start: 20070101
  3. NORDITROPIN NORDIFLEX [Suspect]
     Dosage: 3 MG, SIX TIMES A WEEK
     Route: 058

REACTIONS (1)
  - GRAND MAL CONVULSION [None]
